FAERS Safety Report 10687218 (Version 1)
Quarter: 2015Q1

REPORT INFORMATION
  Report Type: Spontaneous
  Country: DK (occurrence: DK)
  Receive Date: 20150102
  Receipt Date: 20150102
  Transmission Date: 20150720
  Serious: Yes (Other)
  Sender: FDA-Public Use
  Company Number: DK-AUROBINDO-AUR-APL-2014-13737

PATIENT
  Age: 31 Year
  Sex: Female

DRUGS (2)
  1. PAROXETINE [Suspect]
     Active Substance: PAROXETINE\PAROXETINE HYDROCHLORIDE
     Indication: DEPRESSION
     Dosage: UNK
     Route: 065
  2. PAROXETINE [Suspect]
     Active Substance: PAROXETINE\PAROXETINE HYDROCHLORIDE
     Indication: ANXIETY

REACTIONS (9)
  - Female sexual arousal disorder [Recovered/Resolved]
  - Anxiety [Unknown]
  - Agitated depression [Unknown]
  - Condition aggravated [Recovered/Resolved]
  - Depression [Unknown]
  - Priapism [Unknown]
  - Perineurial cyst [Unknown]
  - Somatisation disorder [Unknown]
  - Disturbance in sexual arousal [Recovered/Resolved]

NARRATIVE: CASE EVENT DATE: 201107
